FAERS Safety Report 15241331 (Version 1)
Quarter: 2018Q3

REPORT INFORMATION
  Report Type: Spontaneous
  Country: US (occurrence: US)
  Receive Date: 20180805
  Receipt Date: 20180805
  Transmission Date: 20181010
  Serious: Yes (Hospitalization, Other)
  Sender: FDA-Public Use
  Company Number: US-AUROBINDO-AUR-APL-2018-037948

PATIENT
  Age: 65 Year
  Sex: Male

DRUGS (5)
  1. CIPROFLOXACIN. [Suspect]
     Active Substance: CIPROFLOXACIN
     Indication: URINARY TRACT INFECTION
     Dosage: UNK
     Route: 065
  2. DEXTROMETHORPHAN HYDROBROMIDE W/QUINIDINE SUL [Suspect]
     Active Substance: DEXTROMETHORPHAN HYDROBROMIDE
     Indication: SCHIZOAFFECTIVE DISORDER
     Dosage: 1 DOSAGE FORM
     Route: 065
  3. DEXTROMETHORPHAN HYDROBROMIDE W/QUINIDINE SUL [Suspect]
     Active Substance: DEXTROMETHORPHAN HYDROBROMIDE
     Indication: AFFECT LABILITY
     Dosage: FREQUENCY WAS INCREASED TO EVERY 12 HRS
     Route: 065
  4. LORAZEPAM. [Concomitant]
     Active Substance: LORAZEPAM
     Indication: SCHIZOAFFECTIVE DISORDER
     Dosage: 0.5 MILLIGRAM FOUR TIMES A DAY
     Route: 065
  5. LORAZEPAM. [Concomitant]
     Active Substance: LORAZEPAM
     Dosage: TITRATED TO 1 MG, 3 TIMES A DAY
     Route: 065

REACTIONS (3)
  - Drug withdrawal syndrome [Recovered/Resolved]
  - Catatonia [Recovered/Resolved]
  - Stupor [Recovered/Resolved]
